FAERS Safety Report 9332520 (Version 2)
Quarter: 2013Q2

REPORT INFORMATION
  Report Type: Spontaneous
  Country: US (occurrence: US)
  Receive Date: 20130606
  Receipt Date: 20130626
  Transmission Date: 20140414
  Serious: Yes (Hospitalization)
  Sender: FDA-Public Use
  Company Number: US-009507513-1305USA016279

PATIENT
  Age: 87 Year
  Sex: Female

DRUGS (5)
  1. ASMANEX TWISTHALER [Suspect]
     Indication: ASTHMA
     Dosage: 220 MICROGRAM, QD
     Route: 055
     Dates: start: 20120627
  2. SYNTHROID [Concomitant]
  3. NORVASC [Concomitant]
  4. VALIUM [Concomitant]
  5. TOPROL XL TABLETS [Concomitant]

REACTIONS (7)
  - Atrial fibrillation [Not Recovered/Not Resolved]
  - Adverse event [Not Recovered/Not Resolved]
  - Vision blurred [Not Recovered/Not Resolved]
  - Macular degeneration [Not Recovered/Not Resolved]
  - Pain [Not Recovered/Not Resolved]
  - Blood pressure increased [Not Recovered/Not Resolved]
  - Product quality issue [Unknown]
